FAERS Safety Report 9834833 (Version 3)
Quarter: 2014Q1

REPORT INFORMATION
  Report Type: Spontaneous
  Country: US (occurrence: US)
  Receive Date: 20140122
  Receipt Date: 20140129
  Transmission Date: 20141002
  Serious: Yes (Hospitalization)
  Sender: FDA-Public Use
  Company Number: US-B.I. PHARMACEUTICALS,INC./RIDGEFIELD-2012-BP-11022BP

PATIENT
  Age: 79 Year
  Sex: Female
  Weight: 77.11 kg

DRUGS (9)
  1. PRADAXA [Suspect]
     Indication: ATRIAL FIBRILLATION
     Dosage: 300 MG
     Route: 048
     Dates: start: 20110716, end: 20110817
  2. PRADAXA [Suspect]
     Indication: ANTICOAGULANT THERAPY
  3. DIGOXIN [Concomitant]
     Dates: start: 201106, end: 201108
  4. METROPROLOL [Concomitant]
     Dosage: 25 MG
     Route: 048
     Dates: start: 201106, end: 201205
  5. FUROSEMIDE [Concomitant]
     Dosage: 40 MG
     Route: 048
     Dates: start: 201107, end: 201109
  6. EXFORGE [Concomitant]
     Route: 048
  7. FLUOROMETHOLONE [Concomitant]
     Route: 048
  8. LEVOTHYROXINE [Concomitant]
     Dosage: 25 MCG
     Route: 048
  9. OCULAR LUBRICATION [Concomitant]

REACTIONS (3)
  - Gastrointestinal haemorrhage [Unknown]
  - Anaemia [Unknown]
  - Ischaemic stroke [Unknown]
